FAERS Safety Report 8906167 (Version 2)
Quarter: 2013Q1

REPORT INFORMATION
  Report Type: Spontaneous
  Country: FR (occurrence: None)
  Receive Date: 20121109
  Receipt Date: 20121217
  Transmission Date: 20140127
  Serious: Yes (Hospitalization)
  Sender: FDA-Public Use
  Company Number: ABR_00687_2012

PATIENT
  Age: 53 Year
  Sex: Female

DRUGS (2)
  1. ERYTHROMYCINE [Suspect]
     Indication: GENITAL INFECTION FEMALE
     Dosage: (DF)
     Route: 048
     Dates: start: 20120810, end: 20120819
  2. ERYTHROMYCINE [Suspect]
     Indication: ACTINOMYCOSIS
     Dosage: (DF)
     Route: 048
     Dates: start: 20120810, end: 20120819

REACTIONS (6)
  - Abdominal pain [None]
  - Hepatocellular injury [None]
  - Cholestasis [None]
  - Focal nodular hyperplasia [None]
  - Haemangioma of liver [None]
  - Biliary cyst [None]
